FAERS Safety Report 8889722 (Version 1)
Quarter: 2012Q4

REPORT INFORMATION
  Report Type: 
  Country: MY (occurrence: MY)
  Receive Date: 20121107
  Receipt Date: 20121107
  Transmission Date: 20130627
  Serious: Yes (Hospitalization, Other)
  Sender: FDA-Public Use
  Company Number: PHHY2012MY100369

PATIENT

DRUGS (1)
  1. MEPROBAMATE [Suspect]

REACTIONS (11)
  - Peripheral ischaemia [Unknown]
  - Pain in extremity [Unknown]
  - Cyanosis [Unknown]
  - Tenderness [Unknown]
  - Gangrene [Unknown]
  - Necrosis [Unknown]
  - Oedema peripheral [Unknown]
  - Paraesthesia [Unknown]
  - Drug abuse [Unknown]
  - Wrong technique in drug usage process [Unknown]
  - Pulse pressure decreased [Unknown]
